FAERS Safety Report 9823244 (Version 2)
Quarter: 2014Q1

REPORT INFORMATION
  Report Type: Spontaneous
  Country: FR (occurrence: FR)
  Receive Date: 20140116
  Receipt Date: 20140116
  Transmission Date: 20141002
  Serious: Yes (Other)
  Sender: FDA-Public Use
  Company Number: FR-GILEAD-2013-0079915

PATIENT
  Sex: Male

DRUGS (3)
  1. VIREAD [Suspect]
     Indication: HEPATITIS B
  2. ROSMARINIC ACID [Interacting]
     Indication: PROPHYLAXIS
  3. BARACLUDE [Interacting]
     Indication: HEPATITIS B

REACTIONS (3)
  - Drug interaction [Unknown]
  - Therapeutic response decreased [Unknown]
  - Drug ineffective [Unknown]
